FAERS Safety Report 7232490-3 (Version None)
Quarter: 2011Q1

REPORT INFORMATION
  Report Type: 
  Country: None (occurrence: None)
  Receive Date: 20110119
  Receipt Date: 20110114
  Transmission Date: 20110831
  Serious: No
  Sender: FDA-Public Use
  Company Number: US-BAYER-2011-005615

PATIENT
  Sex: Female

DRUGS (1)
  1. MIRENA [Suspect]
     Indication: CONTRACEPTION
     Dosage: 20 A?G/D, CONT
     Dates: start: 20100420

REACTIONS (5)
  - BLOOD COUNT ABNORMAL [None]
  - OVARIAN CYST [None]
  - VAGINAL HAEMORRHAGE [None]
  - PYREXIA [None]
  - ABDOMINAL DISCOMFORT [None]
